FAERS Safety Report 20314765 (Version 1)
Quarter: 2022Q1

REPORT INFORMATION
  Report Type: Report from Study
  Country: NL (occurrence: NL)
  Receive Date: 20220110
  Receipt Date: 20220110
  Transmission Date: 20220423
  Serious: Yes (Hospitalization, Other)
  Sender: FDA-Public Use
  Company Number: NL-ABBVIE-17K-114-2066408-00

PATIENT
  Sex: Female
  Weight: 50 kg

DRUGS (28)
  1. CLOZAPINE [Suspect]
     Active Substance: CLOZAPINE
     Indication: Hallucination
     Dosage: UNK, QD
     Route: 065
  2. CLOZAPINE [Suspect]
     Active Substance: CLOZAPINE
     Dosage: UNK (DOSE INCREASED)
     Route: 065
  3. CARBIDOPA\LEVODOPA [Suspect]
     Active Substance: CARBIDOPA\LEVODOPA
     Indication: Parkinson^s disease
     Dosage: UNK (MD 5.9 ML, CD 3.0 ML/HR, ED 1.5 ML, REMAINS AT 16 HOURS)
     Route: 050
  4. CARBIDOPA\LEVODOPA [Suspect]
     Active Substance: CARBIDOPA\LEVODOPA
     Dosage: UNK (MD 5, CD 2.5, ED 1.5)
     Route: 050
     Dates: start: 2017
  5. CARBIDOPA\LEVODOPA [Suspect]
     Active Substance: CARBIDOPA\LEVODOPA
     Dosage: UNK (MD 5.9 ML, CD 3.2 ML/HR, ED 1.5 ML, REMAINS AT 16 HOURS)
     Route: 050
  6. CARBIDOPA\LEVODOPA [Suspect]
     Active Substance: CARBIDOPA\LEVODOPA
     Dosage: UNK (EXTRA DOSE REDUCED TO 0.5 ML)
     Route: 050
     Dates: start: 2017, end: 2017
  7. CARBIDOPA\LEVODOPA [Suspect]
     Active Substance: CARBIDOPA\LEVODOPA
     Dosage: UNK (EXTRA DOSE REDUCED TO 1 ML)
     Route: 050
     Dates: start: 2017, end: 2017
  8. CARBIDOPA\LEVODOPA [Suspect]
     Active Substance: CARBIDOPA\LEVODOPA
     Dosage: UNK (MD 5.9 ML, CD 2.9 ML/HR, ED 1.5 ML, REMAINS AT 16 HOURS)
     Route: 050
  9. CARBIDOPA\LEVODOPA [Suspect]
     Active Substance: CARBIDOPA\LEVODOPA
     Dosage: UNK (MD 5.9 ML, CD 3.2 ML/HR, ED 1.5 ML, REMAINS AT 16 HOURS)
     Route: 050
  10. CARBIDOPA\LEVODOPA [Suspect]
     Active Substance: CARBIDOPA\LEVODOPA
     Dosage: UNK (MD 5.4 ML, CD 3.1 ML/HR, ED 1.5 ML, REMAINS AT 16 HOURS)
     Route: 050
     Dates: end: 20190912
  11. CARBIDOPA\LEVODOPA [Suspect]
     Active Substance: CARBIDOPA\LEVODOPA
     Dosage: UNK (MD 5.4, CD 3, ED 1.3)
     Route: 050
     Dates: start: 2017
  12. CARBIDOPA\LEVODOPA [Suspect]
     Active Substance: CARBIDOPA\LEVODOPA
     Dosage: UNK (MD 5.4 ML, CD 3.0 ML/HR, ED 1.5 ML, REMAINS AT 16 HOURS)
     Route: 050
     Dates: start: 20190912
  13. CARBIDOPA\LEVODOPA [Suspect]
     Active Substance: CARBIDOPA\LEVODOPA
     Dosage: UNK (MD: 5.0, CD: 2.1, ED: 1.5)
     Route: 050
     Dates: start: 20170731, end: 2017
  14. CARBIDOPA\LEVODOPA [Suspect]
     Active Substance: CARBIDOPA\LEVODOPA
     Dosage: UNK (MD: 6.2ML, CD: 3.0ML/H, ED: 1.5ML REMAINS AT 16 HOURS)
     Route: 050
     Dates: end: 2021
  15. CARBIDOPA\LEVODOPA [Suspect]
     Active Substance: CARBIDOPA\LEVODOPA
     Dosage: UNK (MD 5.9 ML, CD 2.9 ML/HR, ED 1.5 ML, REMAINS AT 16 HOURS)
     Route: 050
  16. CARBIDOPA\LEVODOPA [Suspect]
     Active Substance: CARBIDOPA\LEVODOPA
     Dosage: UNK (MD 6.2ML CD 3.1 ML/H ED 1.5ML)
     Route: 050
     Dates: start: 2021
  17. PANTOPRAZOLE [Concomitant]
     Active Substance: PANTOPRAZOLE
     Indication: Product used for unknown indication
     Dosage: UNK
  18. MOVICOLON [Concomitant]
     Active Substance: POLYETHYLENE GLYCOL 3350\POTASSIUM CHLORIDE\SODIUM BICARBONATE\SODIUM CHLORIDE
     Indication: Constipation
     Dosage: UNK, SACHET
  19. MOVICOLON [Concomitant]
     Active Substance: POLYETHYLENE GLYCOL 3350\POTASSIUM CHLORIDE\SODIUM BICARBONATE\SODIUM CHLORIDE
     Indication: Abnormal faeces
     Dosage: UNK
  20. RIVASTIGMINE [Concomitant]
     Active Substance: RIVASTIGMINE
     Indication: Parkinson^s disease
     Dosage: 1 UNK, QD (DOSE INCREASED)
     Route: 062
     Dates: start: 20200206
  21. RIVASTIGMINE [Concomitant]
     Active Substance: RIVASTIGMINE
     Indication: Hallucination
     Dosage: UNK
  22. LACTULOSUM [Concomitant]
     Indication: Abnormal faeces
     Dosage: 45 MILLILITER, QD
     Route: 048
     Dates: start: 20200101
  23. LACTULOSUM [Concomitant]
     Dosage: UNK
  24. AMOXICILLIN\CLAVULANATE POTASSIUM [Concomitant]
     Active Substance: AMOXICILLIN\CLAVULANATE POTASSIUM
     Indication: Product used for unknown indication
     Dosage: UNK
  25. BENSERAZIDE HYDROCHLORIDE\LEVODOPA [Concomitant]
     Active Substance: BENSERAZIDE HYDROCHLORIDE\LEVODOPA
     Indication: Product used for unknown indication
     Dosage: 125 MILLIGRAM
  26. CARBIDOPA\LEVODOPA [Concomitant]
     Active Substance: CARBIDOPA\LEVODOPA
     Indication: Parkinson^s disease
     Dosage: UNK
  27. SYMMETREL [Concomitant]
     Active Substance: AMANTADINE HYDROCHLORIDE
     Indication: Product used for unknown indication
     Dosage: UNK, QD
  28. BENSERAZIDE HYDROCHLORIDE\LEVODOPA [Concomitant]
     Active Substance: BENSERAZIDE HYDROCHLORIDE\LEVODOPA
     Indication: Product used for unknown indication
     Dosage: UNK

REACTIONS (71)
  - Psychomotor hyperactivity [Not Recovered/Not Resolved]
  - Unevaluable event [Not Recovered/Not Resolved]
  - Stoma site discharge [Not Recovered/Not Resolved]
  - Stoma site irritation [Not Recovered/Not Resolved]
  - Infrequent bowel movements [Not Recovered/Not Resolved]
  - Hyperkinesia [Not Recovered/Not Resolved]
  - Mobility decreased [Not Recovered/Not Resolved]
  - Orthostatic hypotension [Not Recovered/Not Resolved]
  - Bradykinesia [Not Recovered/Not Resolved]
  - Posture abnormal [Not Recovered/Not Resolved]
  - Dependent personality disorder [Not Recovered/Not Resolved]
  - Cognitive disorder [Not Recovered/Not Resolved]
  - Device leakage [Unknown]
  - Stoma site pain [Not Recovered/Not Resolved]
  - Device difficult to use [Not Recovered/Not Resolved]
  - Abdominal wall wound [Recovering/Resolving]
  - Tremor [Not Recovered/Not Resolved]
  - Emotional disorder [Not Recovered/Not Resolved]
  - Stoma site inflammation [Unknown]
  - Freezing phenomenon [Not Recovered/Not Resolved]
  - Arthralgia [Unknown]
  - Device issue [Not Recovered/Not Resolved]
  - Device breakage [Unknown]
  - Stoma site reaction [Recovering/Resolving]
  - Drug ineffective [Not Recovered/Not Resolved]
  - Hypokinesia [Recovering/Resolving]
  - Drug level decreased [Not Recovered/Not Resolved]
  - Back pain [Unknown]
  - Nocturia [Not Recovered/Not Resolved]
  - Urinary tract infection [Recovered/Resolved]
  - Flatulence [Recovered/Resolved]
  - Constipation [Not Recovered/Not Resolved]
  - Anal incontinence [Not Recovered/Not Resolved]
  - Gait disturbance [Not Recovered/Not Resolved]
  - Therapeutic product effect incomplete [Recovered/Resolved]
  - Hypogeusia [Unknown]
  - Circadian rhythm sleep disorder [Not Recovered/Not Resolved]
  - Hypertension [Not Recovered/Not Resolved]
  - Prolapse [Not Recovered/Not Resolved]
  - Muscle rigidity [Not Recovered/Not Resolved]
  - Cardiac failure [Unknown]
  - Dysstasia [Recovering/Resolving]
  - On and off phenomenon [Not Recovered/Not Resolved]
  - Inflammation [Recovered/Resolved]
  - Fibroma [Not Recovered/Not Resolved]
  - Confusional state [Not Recovered/Not Resolved]
  - Muscle spasms [Not Recovered/Not Resolved]
  - Stoma site erythema [Not Recovered/Not Resolved]
  - Stoma site haemorrhage [Recovered/Resolved]
  - Product dose omission issue [Not Recovered/Not Resolved]
  - Abnormal faeces [Not Recovered/Not Resolved]
  - Delusion [Not Recovered/Not Resolved]
  - Somnolence [Not Recovered/Not Resolved]
  - Defaecation disorder [Not Recovered/Not Resolved]
  - Hallucination [Not Recovered/Not Resolved]
  - Dyskinesia [Not Recovered/Not Resolved]
  - Abdominal pain [Unknown]
  - Therapeutic product effect variable [Not Recovered/Not Resolved]
  - Decreased appetite [Unknown]
  - Nightmare [Not Recovered/Not Resolved]
  - Gastric perforation [Recovered/Resolved]
  - Memory impairment [Not Recovered/Not Resolved]
  - Depressed mood [Recovered/Resolved]
  - Gastrointestinal disorder [Recovering/Resolving]
  - Parkinsonian gait [Not Recovered/Not Resolved]
  - Delirium [Not Recovered/Not Resolved]
  - Gastrointestinal complication associated with device [Recovered/Resolved]
  - Mood swings [Not Recovered/Not Resolved]
  - Salivary hypersecretion [Not Recovered/Not Resolved]
  - Oedema peripheral [Not Recovered/Not Resolved]
  - Therapeutic response shortened [Not Recovered/Not Resolved]

NARRATIVE: CASE EVENT DATE: 20170101
